FAERS Safety Report 9817272 (Version 1)
Quarter: 2014Q1

REPORT INFORMATION
  Report Type: Spontaneous
  Country: US (occurrence: US)
  Receive Date: 20140115
  Receipt Date: 20140115
  Transmission Date: 20141002
  Serious: Yes (Death)
  Sender: FDA-Public Use
  Company Number: US-PFIZER INC-2014007674

PATIENT
  Age: 74 Year
  Sex: Male

DRUGS (10)
  1. ATENOLOL [Suspect]
     Route: 048
  2. GLIPIZIDE [Suspect]
     Route: 048
  3. METFORMIN HCL [Suspect]
     Route: 048
  4. OMEPRAZOLE [Suspect]
     Route: 048
  5. PIOGLITAZONE HYDROCHLORIDE [Suspect]
     Route: 048
  6. DILTIAZEM [Suspect]
     Route: 048
  7. FLUOXETINE [Suspect]
     Route: 048
  8. HYDROCHLOROTHIAZIDE [Suspect]
     Route: 048
  9. LISINOPRIL [Suspect]
     Route: 048
  10. ROSUVASTATIN [Suspect]
     Route: 048

REACTIONS (1)
  - Completed suicide [Fatal]
